FAERS Safety Report 9332678 (Version 1)
Quarter: 2013Q2

REPORT INFORMATION
  Report Type: Spontaneous
  Country: GB (occurrence: None)
  Receive Date: 20130603
  Receipt Date: 20130603
  Transmission Date: 20140414
  Serious: Yes (Other)
  Sender: FDA-Public Use
  Company Number: GB-022934

PATIENT
  Age: 12 Year
  Sex: 0

DRUGS (2)
  1. BUSULFAN [Suspect]
     Indication: BONE MARROW CONDITIONING REGIMEN
     Dosage: 2-4 MG/KG/DAY ON DAYS -9 TO -6
  2. CYCLOPHOSPHAMIDE (CYCLOPHOSPHAMIDE) [Suspect]
     Dosage: 50 MG/KG/ DAY ON DAYS -5 TO -1

REACTIONS (1)
  - Tooth hypoplasia [None]
